FAERS Safety Report 5124534-X (Version None)
Quarter: 2006Q3

REPORT INFORMATION
  Report Type: 
  Country: None (occurrence: None)
  Receive Date: 20060821
  Receipt Date: 20060714
  Transmission Date: 20061208
  Serious: No
  Sender: FDA-Public Use
  Company Number: TPA2006A01121

PATIENT
  Age: 52 Year
  Sex: Female
  Weight: 68.0396 kg

DRUGS (4)
  1. ROZEREM [Suspect]
     Indication: INSOMNIA
     Dosage: PER ORAL
     Route: 048
     Dates: start: 20060601
  2. BUSPAR [Concomitant]
  3. LEXAPRO [Concomitant]
  4. BACLOFEN [Concomitant]

REACTIONS (1)
  - DRUG INEFFECTIVE [None]
